FAERS Safety Report 5323316-3 (Version None)
Quarter: 2007Q2

REPORT INFORMATION
  Report Type: 
  Country: None (occurrence: None)
  Receive Date: 20070221
  Receipt Date: 20061009
  Transmission Date: 20071010
  Serious: Yes (Other)
  Sender: FDA-Public Use
  Company Number: BDI-008729

PATIENT
  Age: 53 Year
  Sex: Female

DRUGS (2)
  1. ISOVUE-300 [Suspect]
     Indication: COMPUTERISED TOMOGRAM ABDOMEN
     Dosage: 150 ML ONCE IV
     Route: 042
     Dates: start: 20061005, end: 20061005
  2. ISOVUE-300 [Suspect]
     Indication: HAEMATURIA
     Dosage: 150 ML ONCE IV
     Route: 042
     Dates: start: 20061005, end: 20061005

REACTIONS (1)
  - ANAPHYLACTOID REACTION [None]
